FAERS Safety Report 8831717 (Version 2)
Quarter: 2013Q3

REPORT INFORMATION
  Report Type: Spontaneous
  Country: GB (occurrence: GB)
  Receive Date: 20121009
  Receipt Date: 20130722
  Transmission Date: 20140515
  Serious: Yes (Death, Hospitalization)
  Sender: FDA-Public Use
  Company Number: GB-ROCHE-1140054

PATIENT
  Age: 58 Year
  Sex: Female
  Weight: 63.7 kg

DRUGS (4)
  1. HERCEPTIN [Suspect]
     Indication: BREAST CANCER
     Route: 042
     Dates: start: 20120910
  2. 5-FLUOROURACIL [Concomitant]
     Dosage: DATE OF 6TH TREATMENT: 18/JUL/2012
     Route: 065
     Dates: start: 20120404
  3. EPIRUBICIN [Concomitant]
     Dosage: DATE OF 6TH TREATMENT: 18/JUL/2012
     Route: 065
     Dates: start: 20120404
  4. CYCLOPHOSPHAMIDE [Concomitant]
     Dosage: DATE OF 6TH TREATMENT: 18/JUL/2012
     Route: 065
     Dates: start: 20120404

REACTIONS (5)
  - Sepsis [Fatal]
  - Diarrhoea [Fatal]
  - Pneumonia [Fatal]
  - Malaise [Unknown]
  - Vomiting [Unknown]
